FAERS Safety Report 17821348 (Version 5)
Quarter: 2020Q4

REPORT INFORMATION
  Report Type: Report from Study
  Country: US (occurrence: US)
  Receive Date: 20200525
  Receipt Date: 20201123
  Transmission Date: 20210113
  Serious: Yes (Life-Threatening, Hospitalization)
  Sender: FDA-Public Use
  Company Number: US-SA-2020SA117440

PATIENT

DRUGS (16)
  1. ACETAMINOFEN [Concomitant]
     Active Substance: ACETAMINOPHEN
     Dosage: 650 MG, PRN
     Route: 048
     Dates: start: 20200423
  2. METHYLPREDNISOLONE. [Concomitant]
     Active Substance: METHYLPREDNISOLONE
     Indication: INFLAMMATION
     Dosage: 50 MG, Q6H
     Route: 042
     Dates: start: 20200423, end: 20200428
  3. VANCOMYCIN [Concomitant]
     Active Substance: VANCOMYCIN
     Indication: BACTERAEMIA
     Dosage: 1250 MG, BID, DOSE RAISED
     Route: 042
     Dates: start: 20200514, end: 20200515
  4. TOCILIZUMAB. [Concomitant]
     Active Substance: TOCILIZUMAB
     Indication: COVID-19
     Dosage: 800 MG, 1X
     Route: 042
     Dates: start: 20200512, end: 20200512
  5. VANCOMYCIN [Concomitant]
     Active Substance: VANCOMYCIN
     Dosage: 1250 MG, Q12H
     Route: 042
     Dates: start: 20200511, end: 20200513
  6. SARILUMAB [Suspect]
     Active Substance: SARILUMAB
     Indication: COVID-19
     Dosage: 200 MG, 1X
     Route: 042
     Dates: start: 20200423, end: 20200423
  7. AZITHROMYCIN ANHYDROUS. [Concomitant]
     Active Substance: AZITHROMYCIN ANHYDROUS
     Indication: COVID-19 PNEUMONIA
     Dosage: 500 MG, QD
     Route: 042
     Dates: start: 20200421, end: 20200421
  8. VANCOMYCIN [Concomitant]
     Active Substance: VANCOMYCIN
     Dosage: 1250 MG, BID
     Route: 042
     Dates: start: 20200524, end: 20200528
  9. PROMETHAZINE - CODEINE [CODEINE PHOSPHATE;PROMETHAZINE HYDROCHLORIDE] [Concomitant]
     Indication: COUGH
     Dosage: 6.25-10MG, QID
     Route: 048
     Dates: start: 20200508, end: 20200510
  10. VANCOMYCIN [Concomitant]
     Active Substance: VANCOMYCIN
     Indication: COVID-19 PNEUMONIA
     Dosage: 1000 MG, Q12H
     Route: 042
     Dates: start: 20200510, end: 20200511
  11. VANCOMYCIN [Concomitant]
     Active Substance: VANCOMYCIN
     Dosage: 1500 MG, BID, DOSE RAISED
     Route: 042
     Dates: start: 20200515, end: 20200516
  12. ACETAMINOFEN [Concomitant]
     Active Substance: ACETAMINOPHEN
     Indication: PAIN
  13. SARILUMAB [Suspect]
     Active Substance: SARILUMAB
     Dosage: 200 MG, 1X
     Route: 042
     Dates: start: 20200424, end: 20200424
  14. ACETAMINOFEN [Concomitant]
     Active Substance: ACETAMINOPHEN
     Indication: PYREXIA
     Dosage: 650 MG, PRN
     Route: 048
     Dates: start: 20200423
  15. MEROPENEM. [Concomitant]
     Active Substance: MEROPENEM
     Indication: COVID-19
     Dosage: 1000 MG, 1X
     Route: 042
     Dates: start: 20200510, end: 20200510
  16. CEFTRIAXONE. [Concomitant]
     Active Substance: CEFTRIAXONE
     Indication: COVID-19 PNEUMONIA
     Dosage: 1000 MG, QD
     Route: 042
     Dates: start: 20200421, end: 20200422

REACTIONS (10)
  - Cardiac ventricular thrombosis [Recovered/Resolved]
  - Aspartate aminotransferase increased [Recovered/Resolved]
  - Alanine aminotransferase increased [Recovered/Resolved]
  - Staphylococcal infection [Recovered/Resolved]
  - Pneumonia bacterial [Not Recovered/Not Resolved]
  - Alanine aminotransferase increased [Not Recovered/Not Resolved]
  - Candida infection [Recovered/Resolved]
  - Supraventricular tachycardia [Recovered/Resolved]
  - Pulmonary embolism [Recovered/Resolved]
  - Alanine aminotransferase increased [Recovered/Resolved]

NARRATIVE: CASE EVENT DATE: 20200501
